FAERS Safety Report 19267957 (Version 2)
Quarter: 2021Q2

REPORT INFORMATION
  Report Type: Other
  Country: JP (occurrence: JP)
  Receive Date: 20210518
  Receipt Date: 20210609
  Transmission Date: 20210717
  Serious: Yes (Other)
  Sender: FDA-Public Use
  Company Number: JP-ROCHE-2831155

PATIENT
  Age: 27 Year
  Sex: Female
  Weight: 52 kg

DRUGS (1)
  1. SATRALIZUMAB. [Suspect]
     Active Substance: SATRALIZUMAB
     Indication: NEUROMYELITIS OPTICA SPECTRUM DISORDER
     Route: 058
     Dates: start: 20201228

REACTIONS (4)
  - Neuromyelitis optica spectrum disorder [Unknown]
  - Visual acuity reduced [Recovered/Resolved]
  - Muscular weakness [Recovered/Resolved]
  - Myopia [Unknown]
